FAERS Safety Report 4356426-8 (Version None)
Quarter: 2004Q2

REPORT INFORMATION
  Report Type: 
  Country: None (occurrence: None)
  Receive Date: 20040510
  Receipt Date: 20040510
  Transmission Date: 20050107
  Serious: Yes (Hospitalization)
  Sender: FDA-Public Use
  Company Number: None

PATIENT
  Age: 75 Year
  Sex: Female
  Weight: 49.8957 kg

DRUGS (1)
  1. COLYTE [Suspect]
     Indication: COLONOSCOPY
     Dosage: 1 GALLON
     Dates: start: 20040926

REACTIONS (3)
  - ASTHENIA [None]
  - BLOOD SODIUM DECREASED [None]
  - PHARMACEUTICAL PRODUCT COMPLAINT [None]
